FAERS Safety Report 19656894 (Version 1)
Quarter: 2021Q3

REPORT INFORMATION
  Report Type: Spontaneous
  Country: US (occurrence: US)
  Receive Date: 20210804
  Receipt Date: 20210804
  Transmission Date: 20211014
  Serious: Yes (Death, Hospitalization)
  Sender: FDA-Public Use
  Company Number: US-ABBVIE-21K-163-4021948-00

PATIENT
  Age: 64 Year
  Sex: Female
  Weight: 59.47 kg

DRUGS (2)
  1. DEPAKENE [Suspect]
     Active Substance: VALPROIC ACID
     Indication: SEIZURE
     Route: 048
  2. DEPAKOTE [Suspect]
     Active Substance: DIVALPROEX SODIUM
     Indication: SEIZURE
     Route: 048
     Dates: end: 20210728

REACTIONS (5)
  - Dysphagia [Unknown]
  - Seizure [Fatal]
  - Anticonvulsant drug level decreased [Recovered/Resolved]
  - Neuropathy peripheral [Unknown]
  - Iris discolouration [Unknown]

NARRATIVE: CASE EVENT DATE: 20210609
